FAERS Safety Report 21394525 (Version 2)
Quarter: 2023Q2

REPORT INFORMATION
  Report Type: Report from Study
  Country: US (occurrence: US)
  Receive Date: 20220930
  Receipt Date: 20230413
  Transmission Date: 20230722
  Serious: Yes (Other)
  Sender: FDA-Public Use
  Company Number: US-NOVARTISPH-NVSC2022US218378

PATIENT
  Sex: Female

DRUGS (2)
  1. ENTRESTO [Suspect]
     Active Substance: SACUBITRIL\VALSARTAN
     Indication: Cardiac failure
     Dosage: 1 DOSAGE FORM, BID (49/51 MG)
     Route: 065
     Dates: start: 202108
  2. ENTRESTO [Suspect]
     Active Substance: SACUBITRIL\VALSARTAN
     Dosage: 1 DOSAGE FORM, QD (97 MG)
     Route: 065

REACTIONS (10)
  - Ejection fraction decreased [Not Recovered/Not Resolved]
  - Chest pain [Not Recovered/Not Resolved]
  - Arrhythmia [Not Recovered/Not Resolved]
  - Angina pectoris [Unknown]
  - Weight decreased [Recovering/Resolving]
  - Abdominal distension [Unknown]
  - Dizziness postural [Recovering/Resolving]
  - Dyspnoea exertional [Recovering/Resolving]
  - Depressed mood [Unknown]
  - Inappropriate schedule of product administration [Unknown]
